FAERS Safety Report 12714995 (Version 3)
Quarter: 2016Q3

REPORT INFORMATION
  Report Type: Spontaneous
  Country: BR (occurrence: BR)
  Receive Date: 20160905
  Receipt Date: 20160926
  Transmission Date: 20161109
  Serious: Yes (Hospitalization, Other)
  Sender: FDA-Public Use
  Company Number: BR-GALDERMA-BR16005800

PATIENT
  Sex: Female
  Weight: 55 kg

DRUGS (1)
  1. PLIAGLIS [Suspect]
     Active Substance: LIDOCAINE\TETRACAINE
     Indication: ANAESTHESIA
     Route: 003
     Dates: start: 20160818, end: 20160818

REACTIONS (7)
  - Hypertension [Unknown]
  - Somnolence [Unknown]
  - Pain of skin [Unknown]
  - Hyperhidrosis [Unknown]
  - Bradycardia [Unknown]
  - Oedema [Unknown]
  - Erythema [Unknown]

NARRATIVE: CASE EVENT DATE: 20160818
